FAERS Safety Report 7197813-2 (Version None)
Quarter: 2010Q4

REPORT INFORMATION
  Report Type: 
  Country: None (occurrence: None)
  Receive Date: 20101227
  Receipt Date: 20101220
  Transmission Date: 20110411
  Serious: Yes (Death)
  Sender: FDA-Public Use
  Company Number: JP-ASTRAZENECA-2010SE55465

PATIENT
  Age: 60 Year
  Sex: Male
  Weight: 55 kg

DRUGS (10)
  1. IRESSA [Suspect]
     Indication: LUNG ADENOCARCINOMA
     Route: 048
     Dates: start: 20100921, end: 20101109
  2. LOXONIN [Concomitant]
     Route: 048
     Dates: start: 20100422
  3. MUCOSTA [Concomitant]
     Route: 048
     Dates: start: 20100422
  4. MUCODYNE [Concomitant]
     Route: 048
     Dates: start: 20100422
  5. DEPAKENE [Concomitant]
     Route: 048
     Dates: start: 20100527
  6. DIGOSIN [Concomitant]
     Route: 048
     Dates: start: 20101012
  7. HERBESSER R [Concomitant]
     Route: 048
     Dates: start: 20101012
  8. TAMSULOSIN HCL [Concomitant]
     Route: 048
     Dates: start: 20101012
  9. PREDNISOLONE [Concomitant]
     Route: 048
     Dates: start: 20101018
  10. OXYCONTIN [Concomitant]
     Route: 048
     Dates: start: 20101109

REACTIONS (1)
  - LUNG DISORDER [None]
